FAERS Safety Report 18569387 (Version 1)
Quarter: 2020Q4

REPORT INFORMATION
  Report Type: Spontaneous
  Country: US (occurrence: US)
  Receive Date: 20201201
  Receipt Date: 20201201
  Transmission Date: 20210114
  Serious: No
  Sender: FDA-Public Use
  Company Number: None

PATIENT
  Sex: Male

DRUGS (11)
  1. VITAMIN B12 [Suspect]
     Active Substance: CYANOCOBALAMIN
  2. BENAZEPRIL HCL [Suspect]
     Active Substance: BENAZEPRIL HYDROCHLORIDE
  3. BRUKINSA [Suspect]
     Active Substance: ZANUBRUTINIB
     Indication: CHRONIC LYMPHOCYTIC LEUKAEMIA
     Route: 048
  4. LEVOTHYROXINE SODIUM. [Suspect]
     Active Substance: LEVOTHYROXINE SODIUM
  5. ACYCLOVIR. [Suspect]
     Active Substance: ACYCLOVIR
  6. IMODIUM A-D [Suspect]
     Active Substance: LOPERAMIDE HYDROCHLORIDE
  7. ALLOPURINOL. [Suspect]
     Active Substance: ALLOPURINOL
  8. COLCHICINE. [Suspect]
     Active Substance: COLCHICINE
  9. ATENOLOL. [Suspect]
     Active Substance: ATENOLOL
  10. SOLIFENACIN SUCCINATE. [Suspect]
     Active Substance: SOLIFENACIN SUCCINATE
  11. SIMVASTATIN. [Suspect]
     Active Substance: SIMVASTATIN

REACTIONS (1)
  - Skin fissures [None]
